FAERS Safety Report 6621934-3 (Version None)
Quarter: 2010Q1

REPORT INFORMATION
  Report Type: 
  Country: None (occurrence: None)
  Receive Date: 20100304
  Receipt Date: 20100220
  Transmission Date: 20100710
  Serious: Yes (Other)
  Sender: FDA-Public Use
  Company Number: B0636309A

PATIENT
  Age: 46 Year
  Sex: Male

DRUGS (5)
  1. LAMIVUDINE [Suspect]
     Indication: HIV INFECTION
  2. ABACAVIR SULFATE [Suspect]
     Indication: HIV INFECTION
  3. AMPRENAVIR (AMPRENAVIR) (FORMULATION UNKNOWN) (GENERIC) [Suspect]
     Indication: HIV INFECTION
  4. RITONAVIR [Suspect]
     Indication: HIV INFECTION
  5. EFAVIRENZ [Suspect]
     Indication: HIV INFECTION

REACTIONS (4)
  - BLOOD HIV RNA INCREASED [None]
  - DISEASE RECURRENCE [None]
  - DRUG RESISTANCE [None]
  - HEPATITIS B [None]
